FAERS Safety Report 5303268-2 (Version None)
Quarter: 2007Q2

REPORT INFORMATION
  Report Type: 
  Country: None (occurrence: None)
  Receive Date: 20070420
  Receipt Date: 20070418
  Transmission Date: 20071010
  Serious: Yes (Death, Life-Threatening, Hospitalization, Other)
  Sender: FDA-Public Use
  Company Number: AR-GLAXOSMITHKLINE-A0641563A

PATIENT
  Age: 59 Year
  Sex: Male

DRUGS (3)
  1. LAMICTAL [Suspect]
     Indication: BIPOLAR DISORDER
     Route: 048
  2. FLUOXETINE [Concomitant]
  3. ASPIRIN [Concomitant]

REACTIONS (7)
  - INFECTION [None]
  - INTESTINAL PERFORATION [None]
  - MULTI-ORGAN FAILURE [None]
  - ORAL SOFT TISSUE DISORDER [None]
  - PHARYNGEAL LESION [None]
  - SEPSIS [None]
  - STEVENS-JOHNSON SYNDROME [None]
